FAERS Safety Report 25386494 (Version 1)
Quarter: 2025Q2

REPORT INFORMATION
  Report Type: Spontaneous
  Country: US (occurrence: None)
  Receive Date: 20250602
  Receipt Date: 20250602
  Transmission Date: 20250716
  Serious: No
  Sender: FDA-CTU
  Company Number: None

PATIENT
  Age: 57 Year
  Sex: Male

DRUGS (1)
  1. IBUPROFEN [Suspect]
     Active Substance: IBUPROFEN
     Indication: Pain
     Dosage: FREQUENCY : 3 TIMES A DAY;?
     Route: 048
     Dates: end: 20250117

REACTIONS (3)
  - Anaphylactic reaction [None]
  - Angioedema [None]
  - Rash [None]

NARRATIVE: CASE EVENT DATE: 20250117
